FAERS Safety Report 10052529 (Version 1)
Quarter: 2014Q2

REPORT INFORMATION
  Report Type: Spontaneous
  Country: US (occurrence: US)
  Receive Date: 20140402
  Receipt Date: 20140402
  Transmission Date: 20141212
  Serious: Yes (Death, Hospitalization)
  Sender: FDA-Public Use
  Company Number: US-SA-2014SA038071

PATIENT
  Sex: Male

DRUGS (4)
  1. AMBIEN [Suspect]
     Route: 065
  2. ALCOHOL [Suspect]
     Route: 065
  3. ALL OTHER THERAPEUTIC PRODUCTS [Suspect]
     Route: 065
  4. OPIOIDS [Suspect]
     Route: 065

REACTIONS (2)
  - Death [Fatal]
  - Foaming at mouth [Fatal]
